FAERS Safety Report 20894191 (Version 2)
Quarter: 2022Q2

REPORT INFORMATION
  Report Type: Spontaneous
  Country: IT (occurrence: IT)
  Receive Date: 20220531
  Receipt Date: 20220617
  Transmission Date: 20220720
  Serious: Yes (Other)
  Sender: FDA-Public Use
  Company Number: IT-MENARINI-IT-MEN-081331

PATIENT
  Age: 74 Year
  Sex: Male

DRUGS (8)
  1. ATORVASTATIN [Interacting]
     Active Substance: ATORVASTATIN
     Indication: Arteriosclerosis
     Dosage: 20 MILLIGRAM, QD
  2. ATORVASTATIN [Interacting]
     Active Substance: ATORVASTATIN
     Indication: Aortic aneurysm
     Dosage: UNK
  3. ROSUVASTATIN [Suspect]
     Active Substance: ROSUVASTATIN
     Indication: Arteriosclerosis
     Dosage: 5 MILLIGRAM, QD
  4. ROSUVASTATIN [Suspect]
     Active Substance: ROSUVASTATIN
     Indication: Aortic aneurysm
  5. SONIDEGIB [Interacting]
     Active Substance: SONIDEGIB
     Indication: Disease progression
     Dosage: 200 MILLIGRAM, QD (CYCLIC THERAPY; IN CYCLES OF 30 DAYS)
  6. SONIDEGIB [Interacting]
     Active Substance: SONIDEGIB
     Indication: Basal cell carcinoma
  7. MAGNESIUM [Concomitant]
     Active Substance: MAGNESIUM
     Indication: Muscle spasms
     Dosage: UNK
  8. POTASSIUM [Concomitant]
     Active Substance: POTASSIUM
     Indication: Muscle spasms
     Dosage: UNK

REACTIONS (4)
  - Blood creatine phosphokinase increased [Recovered/Resolved]
  - Muscle spasms [Recovered/Resolved]
  - Drug interaction [Recovering/Resolving]
  - Drug ineffective [Unknown]
